FAERS Safety Report 13693636 (Version 2)
Quarter: 2017Q3

REPORT INFORMATION
  Report Type: Spontaneous
  Country: BR (occurrence: BR)
  Receive Date: 20170627
  Receipt Date: 20170811
  Transmission Date: 20171127
  Serious: Yes (Other)
  Sender: FDA-Public Use
  Company Number: BR-JNJFOC-20170619212

PATIENT
  Sex: Female

DRUGS (2)
  1. AKINETON [Concomitant]
     Active Substance: BIPERIDEN HYDROCHLORIDE
     Route: 065
  2. HALDOL [Suspect]
     Active Substance: HALOPERIDOL
     Indication: PRODUCT USED FOR UNKNOWN INDICATION
     Dosage: SINCE SHE WAS 25 YEARS OLD
     Route: 048

REACTIONS (5)
  - Drug dose omission [Unknown]
  - Renal pain [Not Recovered/Not Resolved]
  - Gait inability [Recovered/Resolved]
  - Movement disorder [Unknown]
  - Product availability issue [Unknown]

NARRATIVE: CASE EVENT DATE: 2017
